FAERS Safety Report 26059078 (Version 1)
Quarter: 2025Q4

REPORT INFORMATION
  Report Type: Spontaneous
  Country: US (occurrence: US)
  Receive Date: 20251118
  Receipt Date: 20251118
  Transmission Date: 20260119
  Serious: No
  Sender: COLLEGIUM PHARMACEUTICAL
  Company Number: US-COLLEGIUM PHARMACEUTICAL, INC.-20251002639

PATIENT

DRUGS (1)
  1. BELBUCA [Suspect]
     Active Substance: BUPRENORPHINE HYDROCHLORIDE
     Indication: Pain management
     Dosage: 450 MICROGRAM, BID (Q12 HR)
     Route: 002
     Dates: start: 20251001

REACTIONS (2)
  - Product solubility abnormal [None]
  - Product adhesion issue [None]

NARRATIVE: CASE EVENT DATE: 20251001
